FAERS Safety Report 12535625 (Version 1)
Quarter: 2016Q3

REPORT INFORMATION
  Report Type: Spontaneous
  Country: IT (occurrence: IT)
  Receive Date: 20160707
  Receipt Date: 20160707
  Transmission Date: 20161109
  Serious: Yes (Hospitalization, Other)
  Sender: FDA-Public Use
  Company Number: IT-BRISTOL-MYERS SQUIBB COMPANY-BMS-2016-052665

PATIENT
  Age: 83 Year
  Sex: Male

DRUGS (1)
  1. COUMADIN [Suspect]
     Active Substance: WARFARIN SODIUM
     Indication: ANTICOAGULANT THERAPY
     Dosage: 5 MG, QD
     Route: 048

REACTIONS (8)
  - Anaemia [Recovering/Resolving]
  - Acute respiratory failure [Unknown]
  - Prothrombin time prolonged [Unknown]
  - Iron deficiency [Unknown]
  - Pneumonia [Unknown]
  - Lactic acidosis [Unknown]
  - Transfusion [Unknown]
  - Folate deficiency [Unknown]

NARRATIVE: CASE EVENT DATE: 20160205
